APPROVED DRUG PRODUCT: LACOSAMIDE
Active Ingredient: LACOSAMIDE
Strength: 10MG/ML
Dosage Form/Route: SOLUTION;ORAL
Application: A220386 | Product #001 | TE Code: AA
Applicant: REGCON HOLDINGS LLC
Approved: Jan 29, 2026 | RLD: No | RS: No | Type: RX